FAERS Safety Report 15980986 (Version 1)
Quarter: 2019Q1

REPORT INFORMATION
  Report Type: Spontaneous
  Country: US (occurrence: US)
  Receive Date: 20190218
  Receipt Date: 20190218
  Transmission Date: 20190418
  Serious: Yes (Other)
  Sender: FDA-Public Use
  Company Number: None

PATIENT
  Age: 31 Year
  Sex: Female
  Weight: 81 kg

DRUGS (3)
  1. DULOXETINE. [Suspect]
     Active Substance: DULOXETINE
     Indication: DEPRESSION
     Dosage: ?          QUANTITY:2 CAPSULE(S);?
     Route: 048
     Dates: start: 20181215, end: 20190215
  2. NORETHINDRONE. [Concomitant]
     Active Substance: NORETHINDRONE
  3. DULOXETINE. [Suspect]
     Active Substance: DULOXETINE
     Indication: ANXIETY
     Dosage: ?          QUANTITY:2 CAPSULE(S);?
     Route: 048
     Dates: start: 20181215, end: 20190215

REACTIONS (5)
  - Impaired driving ability [None]
  - Muscle tightness [None]
  - Withdrawal syndrome [None]
  - Anxiety [None]
  - Photosensitivity reaction [None]

NARRATIVE: CASE EVENT DATE: 20190218
